FAERS Safety Report 10669728 (Version 6)
Quarter: 2016Q3

REPORT INFORMATION
  Report Type: Spontaneous
  Country: CA (occurrence: CA)
  Receive Date: 20141222
  Receipt Date: 20160706
  Transmission Date: 20161109
  Serious: Yes (Other)
  Sender: FDA-Public Use
  Company Number: CA-GSKJP-KK201404252GSK1550188002

PATIENT
  Age: 38 Year
  Sex: Female
  Weight: 76 kg

DRUGS (5)
  1. BENLYSTA [Suspect]
     Active Substance: BELIMUMAB
     Dosage: 700 MG Q 4 WEEKS
     Route: 042
  2. BENLYSTA [Suspect]
     Active Substance: BELIMUMAB
     Indication: SYSTEMIC LUPUS ERYTHEMATOSUS
     Dosage: 10 MG/KG ON WKS 0, 2, 4; THEN EVERY 4 WEEKS
     Route: 042
     Dates: start: 20130320
  3. BENLYSTA [Suspect]
     Active Substance: BELIMUMAB
     Dosage: 1000 MG, Q4 WEEKS
     Route: 042
  4. BENLYSTA [Suspect]
     Active Substance: BELIMUMAB
     Dosage: UNK
     Route: 042
     Dates: end: 20141111
  5. METHOTREXATE. [Suspect]
     Active Substance: METHOTREXATE
     Indication: PRODUCT USED FOR UNKNOWN INDICATION
     Dosage: 25 MG, U
     Route: 058

REACTIONS (20)
  - Hypersensitivity [Recovered/Resolved]
  - Disability [Not Recovered/Not Resolved]
  - Chills [Unknown]
  - Arthralgia [Not Recovered/Not Resolved]
  - Drug ineffective [Unknown]
  - Fatigue [Not Recovered/Not Resolved]
  - Ankle fracture [Unknown]
  - Nausea [Unknown]
  - Somnolence [Unknown]
  - Headache [Unknown]
  - Mydriasis [Unknown]
  - Oropharyngeal pain [Unknown]
  - Arthropathy [Unknown]
  - Tooth infection [Unknown]
  - Systemic lupus erythematosus [Unknown]
  - Malaise [Unknown]
  - Depressed mood [Unknown]
  - Pain [Unknown]
  - Hyperhidrosis [Unknown]
  - Pyrexia [Unknown]

NARRATIVE: CASE EVENT DATE: 20131009
